FAERS Safety Report 8136121-X (Version None)
Quarter: 2012Q1

REPORT INFORMATION
  Report Type: 
  Country: None (occurrence: None)
  Receive Date: 20120210
  Receipt Date: 20120206
  Transmission Date: 20120608
  Serious: Yes (Death, Other)
  Sender: FDA-Public Use
  Company Number: 2011300244

PATIENT

DRUGS (1)
  1. FRAGMIN [Suspect]
     Indication: DISSEMINATED INTRAVASCULAR COAGULATION
     Dates: start: 20111208, end: 20111208

REACTIONS (2)
  - RENAL IMPAIRMENT [None]
  - PLATELET COUNT DECREASED [None]
